FAERS Safety Report 16771256 (Version 1)
Quarter: 2019Q3

REPORT INFORMATION
  Report Type: Spontaneous
  Country: ES (occurrence: ES)
  Receive Date: 20190904
  Receipt Date: 20190904
  Transmission Date: 20191005
  Serious: Yes (Other)
  Sender: FDA-Public Use
  Company Number: ES-FRESENIUS KABI-FK201909601

PATIENT
  Age: 66 Year
  Sex: Female

DRUGS (5)
  1. PREDNISONE. [Suspect]
     Active Substance: PREDNISONE
     Indication: ANTI-GLOMERULAR BASEMENT MEMBRANE DISEASE
     Route: 065
  2. MYCOPHENOLATE MOFETIL. [Suspect]
     Active Substance: MYCOPHENOLATE MOFETIL
     Indication: ANTI-GLOMERULAR BASEMENT MEMBRANE DISEASE
     Route: 065
  3. PREDNISONE. [Suspect]
     Active Substance: PREDNISONE
     Route: 065
  4. METHYLPREDNISOLONE (MANUFACTURER UNKNOWN) [Suspect]
     Active Substance: METHYLPREDNISOLONE
     Indication: ANTI-GLOMERULAR BASEMENT MEMBRANE DISEASE
     Route: 065
  5. CYCLOPHOSPHAMIDE. [Suspect]
     Active Substance: CYCLOPHOSPHAMIDE
     Indication: ANTI-GLOMERULAR BASEMENT MEMBRANE DISEASE
     Dosage: 3 MONTHLY BOLUSES
     Route: 065

REACTIONS (2)
  - Human herpesvirus 8 infection [Recovered/Resolved]
  - Kaposi^s sarcoma [Recovered/Resolved]
